FAERS Safety Report 18239575 (Version 1)
Quarter: 2020Q3

REPORT INFORMATION
  Report Type: Report from Study
  Country: None (occurrence: US)
  Receive Date: 20200908
  Receipt Date: 20200908
  Transmission Date: 20201103
  Serious: Yes (Hospitalization, Other)
  Sender: FDA-Public Use
  Company Number: US-ABBVIE-20K-163-3549940-00

PATIENT
  Age: 14 Year
  Sex: Female
  Weight: 31.78 kg

DRUGS (1)
  1. HUMIRA [Suspect]
     Active Substance: ADALIMUMAB
     Indication: RHEUMATIC DISORDER
     Route: 058
     Dates: start: 201911

REACTIONS (4)
  - Swelling face [Not Recovered/Not Resolved]
  - Dental cyst [Not Recovered/Not Resolved]
  - Tooth extraction [Unknown]
  - Gingivitis [Unknown]

NARRATIVE: CASE EVENT DATE: 20200828
